FAERS Safety Report 10061473 (Version 1)
Quarter: 2014Q2

REPORT INFORMATION
  Report Type: Report from Study
  Country: US (occurrence: US)
  Receive Date: 20140407
  Receipt Date: 20140407
  Transmission Date: 20141212
  Serious: Yes (Other)
  Sender: FDA-Public Use
  Company Number: US-SUN PHARMACEUTICAL INDUSTRIES LTD-2014SUN00751

PATIENT
  Age: 21 Year
  Sex: Male
  Weight: 108.84 kg

DRUGS (2)
  1. BUPRENORPHINE/NALOXONE SUBLINGUAL FILM 8 MG/2 MG [Suspect]
     Indication: DRUG LEVEL
     Dosage: UNK
  2. SUBOXONE SUBLINGUAL FILM [Suspect]
     Indication: DRUG LEVEL
     Dosage: 8MG/2MG ONCE
     Route: 060
     Dates: start: 20140325, end: 20140325

REACTIONS (1)
  - Bradycardia [Recovered/Resolved]
